FAERS Safety Report 5972956-7 (Version None)
Quarter: 2008Q4

REPORT INFORMATION
  Report Type: 
  Country: None (occurrence: None)
  Receive Date: 20081201
  Receipt Date: 20081121
  Transmission Date: 20090506
  Serious: Yes (Other)
  Sender: FDA-Public Use
  Company Number: PHHY2008DE29374

PATIENT
  Sex: Female

DRUGS (1)
  1. TEGRETOL [Suspect]
     Dosage: 100 MG/ 5 ML
     Route: 048

REACTIONS (1)
  - THERAPEUTIC AGENT TOXICITY [None]
